FAERS Safety Report 4693612-1 (Version None)
Quarter: 2005Q2

REPORT INFORMATION
  Report Type: 
  Country: None (occurrence: None)
  Receive Date: 20050615
  Receipt Date: 20050526
  Transmission Date: 20051028
  Serious: Yes (Hospitalization, Other)
  Sender: FDA-Public Use
  Company Number: USA050599086

PATIENT
  Sex: Female

DRUGS (1)
  1. EVISTA [Suspect]

REACTIONS (3)
  - ABDOMINAL PAIN UPPER [None]
  - HEPATIC LESION [None]
  - PHARMACEUTICAL PRODUCT COMPLAINT [None]
